FAERS Safety Report 6485605-9 (Version None)
Quarter: 2009Q4

REPORT INFORMATION
  Report Type: 
  Country: None (occurrence: None)
  Receive Date: 20091204
  Receipt Date: 20091123
  Transmission Date: 20100525
  Serious: Yes (Other)
  Sender: FDA-Public Use
  Company Number: 8011092

PATIENT
  Age: 31 Year
  Sex: Female

DRUGS (5)
  1. KEPPRA [Suspect]
     Indication: CONTRACEPTION
     Dosage: 750 MG 2 / D
  2. NORINYL 1+35 28-DAY [Suspect]
     Dosage: NI, UNKNOWN
  3. LAMOTRIGINE [Concomitant]
  4. GABAPENTIN [Concomitant]
  5. TIPIRAMATE [Concomitant]

REACTIONS (4)
  - DEATH OF RELATIVE [None]
  - DRUG EXPOSURE DURING PREGNANCY [None]
  - HOMELESS [None]
  - PREGNANCY [None]
